FAERS Safety Report 8912987 (Version 1)
Quarter: 2012Q4

REPORT INFORMATION
  Report Type: Spontaneous
  Country: US (occurrence: None)
  Receive Date: 20121114
  Receipt Date: 20121114
  Transmission Date: 20130627
  Serious: No
  Sender: FDA-Public Use
  Company Number: None

PATIENT
  Age: 54 Year
  Sex: Female
  Weight: 185 kg

DRUGS (2)
  1. AFINITOR [Suspect]
     Indication: BREAST CANCER METASTATIC
     Route: 048
     Dates: start: 20120926, end: 20121111
  2. AFINITOR [Suspect]
     Indication: METASTASES TO LYMPH NODES
     Route: 048
     Dates: start: 20120926, end: 20121111

REACTIONS (2)
  - Pericardial effusion [None]
  - Pleural effusion [None]
